FAERS Safety Report 11939141 (Version 1)
Quarter: 2016Q1

REPORT INFORMATION
  Report Type: Spontaneous
  Country: IT (occurrence: IT)
  Receive Date: 20160122
  Receipt Date: 20160122
  Transmission Date: 20160526
  Serious: Yes (Hospitalization)
  Sender: FDA-Public Use
  Company Number: IT-BAXTER-2016BAX002557

PATIENT
  Age: 64 Year
  Sex: Male

DRUGS (5)
  1. AMPICILLINA [Suspect]
     Active Substance: AMPICILLIN SODIUM
     Indication: ANAESTHESIA PROCEDURE
     Route: 065
     Dates: start: 20151126, end: 20151126
  2. ROCURONIO BROMURO [Suspect]
     Active Substance: ROCURONIUM BROMIDE
     Indication: ANAESTHESIA PROCEDURE
     Dosage: 1 POSOLOGICAL UNIT
     Route: 065
     Dates: start: 20151126, end: 20151126
  3. FENTANYL. [Suspect]
     Active Substance: FENTANYL
     Indication: ANAESTHESIA PROCEDURE
     Route: 065
     Dates: start: 20151126, end: 20151126
  4. PROPOFOL. [Suspect]
     Active Substance: PROPOFOL
     Indication: ANAESTHESIA PROCEDURE
     Dosage: 1 POSOLOGICAL UNIT
     Route: 065
     Dates: start: 20151126, end: 20151126
  5. SEVOFLURANE BAXTER [Suspect]
     Active Substance: SEVOFLURANE
     Indication: ANAESTHESIA PROCEDURE
     Dosage: 1 POSOLOGICAL UNIT
     Route: 065
     Dates: start: 20151126, end: 20151126

REACTIONS (1)
  - Anaphylactic shock [Recovered/Resolved]

NARRATIVE: CASE EVENT DATE: 20151126
